FAERS Safety Report 9013082 (Version 1)
Quarter: 2013Q1

REPORT INFORMATION
  Report Type: Spontaneous
  Country: US (occurrence: US)
  Receive Date: 20130114
  Receipt Date: 20130114
  Transmission Date: 20140127
  Serious: Yes (Other)
  Sender: FDA-Public Use
  Company Number: US-ASTRAZENECA-2013SE01430

PATIENT
  Age: 46 Year
  Sex: Female

DRUGS (10)
  1. SYMBICORT [Suspect]
     Dosage: UNKNOWN
     Route: 055
  2. LISINOPRIL HYDROCHOROTHIAZIDE [Suspect]
     Dosage: 20-25 MG TWO TABLETS ONE TIME PER DAY
     Route: 048
  3. METFORMIN [Suspect]
     Route: 048
  4. NORVASC [Concomitant]
  5. WELLBUTRIN SR [Concomitant]
  6. ALBUTEROL [Concomitant]
     Dosage: 90 MCG TWO PUFFS EVERY SIX HOURS PRN
     Route: 055
  7. BUSPIRON [Concomitant]
     Route: 048
  8. SIMVASTATIN [Concomitant]
     Route: 048
  9. REMERON [Concomitant]
     Route: 048
  10. FLEXERIL [Concomitant]
     Dosage: ONE TABLET TWO TIMES PER DAY AND PRN
     Route: 048

REACTIONS (21)
  - Accelerated hypertension [Unknown]
  - Essential hypertension [Unknown]
  - Smear cervix abnormal [Unknown]
  - Back pain [Unknown]
  - Intervertebral disc degeneration [Unknown]
  - Lumbar radiculopathy [Unknown]
  - Pain [Unknown]
  - Breast mass [Unknown]
  - Generalised anxiety disorder [Unknown]
  - Depression [Unknown]
  - Insomnia [Unknown]
  - Myalgia [Unknown]
  - Myositis [Unknown]
  - Type 2 diabetes mellitus [Unknown]
  - Bronchitis [Unknown]
  - Chronic obstructive pulmonary disease [Unknown]
  - Diabetes mellitus inadequate control [Unknown]
  - Dysthymic disorder [Unknown]
  - Skin candida [Unknown]
  - Bereavement [Unknown]
  - Pruritus [Unknown]
